FAERS Safety Report 7467709-7 (Version None)
Quarter: 2011Q2

REPORT INFORMATION
  Report Type: 
  Country: None (occurrence: None)
  Receive Date: 20110505
  Receipt Date: 20110505
  Transmission Date: 20111010
  Serious: Yes (Hospitalization)
  Sender: FDA-Public Use
  Company Number: None

PATIENT
  Sex: Male
  Weight: 58 kg

DRUGS (11)
  1. DOXORUBICIN HCL [Suspect]
     Dosage: 93 MG
  2. ATIVAN [Concomitant]
  3. LEUCOVORIN CALCIUM [Suspect]
     Dosage: 1210 MG
  4. MS CONTIN [Concomitant]
  5. CYCLOPHOSPHAMIDE [Suspect]
     Dosage: 2976 MG
  6. CYTARABINE [Suspect]
     Dosage: 100 MG
  7. METHOTREXATE [Suspect]
     Dosage: 5580 MG
  8. G-CSF (FILGRASTIM, AMGEN) [Suspect]
     Dosage: 480 MCG
  9. RITUXIMAB (MOAB C2B8 ANTI CD20, CHIMERIC) [Suspect]
     Dosage: 698 MG
  10. VINCRISTINE SULFATE [Suspect]
     Dosage: 2 MG
  11. MSIR [Concomitant]

REACTIONS (5)
  - FUNGAL INFECTION [None]
  - MENTAL STATUS CHANGES [None]
  - COUGH [None]
  - CONJUNCTIVITIS [None]
  - CANDIDIASIS [None]
